FAERS Safety Report 4689182-4 (Version None)
Quarter: 2005Q2

REPORT INFORMATION
  Report Type: 
  Country: None (occurrence: None)
  Receive Date: 20050608
  Receipt Date: 20050223
  Transmission Date: 20051028
  Serious: No
  Sender: FDA-Public Use
  Company Number: 2005-BP-03146BP

PATIENT
  Age: 54 Year
  Sex: Female

DRUGS (10)
  1. SPIRIVA [Suspect]
     Indication: CHRONIC OBSTRUCTIVE PULMONARY DISEASE
     Dosage: 18 MCG, IH
     Route: 055
  2. COUMADIN [Concomitant]
  3. ALDACTONE [Concomitant]
  4. DEXTRAN (DEXTRAN) [Concomitant]
  5. ALTACE [Concomitant]
  6. FUROSEMIDE [Concomitant]
  7. SEREVENT [Concomitant]
  8. XOPENEX [Concomitant]
  9. XANAX [Concomitant]
  10. NORVASC [Concomitant]

REACTIONS (2)
  - SWELLING FACE [None]
  - SWOLLEN TONGUE [None]
